FAERS Safety Report 18624089 (Version 1)
Quarter: 2020Q4

REPORT INFORMATION
  Report Type: Spontaneous
  Country: US (occurrence: US)
  Receive Date: 20201216
  Receipt Date: 20201216
  Transmission Date: 20210114
  Serious: No
  Sender: FDA-Public Use
  Company Number: US-PFIZER INC-2020495334

PATIENT
  Age: 71 Year
  Sex: Female

DRUGS (2)
  1. SIROLIMUS. [Suspect]
     Active Substance: SIROLIMUS
     Dosage: 1.5 MG DAILY
  2. SIROLIMUS. [Suspect]
     Active Substance: SIROLIMUS
     Indication: APLASTIC ANAEMIA
     Dosage: 1 MG, DAILY
     Route: 048

REACTIONS (3)
  - Drug level decreased [Unknown]
  - Dizziness [Unknown]
  - Off label use [Unknown]

NARRATIVE: CASE EVENT DATE: 20201214
